FAERS Safety Report 4310113-0 (Version None)
Quarter: 2004Q1

REPORT INFORMATION
  Report Type: 
  Country: None (occurrence: None)
  Receive Date: 20040301
  Receipt Date: 20031125
  Transmission Date: 20041129
  Serious: No
  Sender: FDA-Public Use
  Company Number: WAES 0311USA02855

PATIENT
  Sex: Female
  Weight: 65.318 kg

DRUGS (7)
  1. ZETIA [Suspect]
     Indication: HYPERLIPIDAEMIA
     Dosage: 10 MG/DAILY/PO; PO
     Route: 048
  2. FOSAMAX [Concomitant]
  3. HYODRDIURIL [Concomitant]
  4. K-DUR 10 [Concomitant]
  5. ASPIRIN [Concomitant]
  6. NIACIN [Concomitant]
  7. VITAMIN E [Concomitant]

REACTIONS (3)
  - BACK PAIN [None]
  - DIZZINESS [None]
  - RHINORRHOEA [None]
